FAERS Safety Report 26024344 (Version 1)
Quarter: 2025Q4

REPORT INFORMATION
  Report Type: Spontaneous
  Country: EU (occurrence: EU)
  Receive Date: 20251111
  Receipt Date: 20251111
  Transmission Date: 20260117
  Serious: Yes (Other)
  Sender: TEVA
  Company Number: None

PATIENT
  Age: 68 Year
  Sex: Female
  Weight: 65 kg

DRUGS (4)
  1. FLUOROURACIL [Suspect]
     Active Substance: FLUOROURACIL
     Indication: Adenocarcinoma of colon
     Dosage: NOT AVAILABLE / 2 WEEKS, 5-FLUOROURACIL
     Route: 042
     Dates: start: 20250428
  2. OXALIPLATIN [Suspect]
     Active Substance: OXALIPLATIN
     Indication: Adenocarcinoma of colon
     Dosage: NOT AVAILABLE / 2 WEEKS, OXALIPLATINO
     Route: 042
     Dates: start: 20250428
  3. BEVACIZUMAB [Suspect]
     Active Substance: BEVACIZUMAB
     Indication: Adenocarcinoma of colon
     Dosage: NOT AVAILABLE / 2 WEEKS
     Route: 042
     Dates: start: 20250428
  4. LEUCOVORIN [Suspect]
     Active Substance: LEUCOVORIN\LEUCOVORIN CALCIUM
     Indication: Adenocarcinoma of colon
     Dosage: NOT AVAILABLE / 2 WEEKS
     Route: 042
     Dates: start: 20250428

REACTIONS (3)
  - Neutropenia [Recovered/Resolved]
  - Diarrhoea [Unknown]
  - Cancer fatigue [Unknown]

NARRATIVE: CASE EVENT DATE: 20250901
